FAERS Safety Report 10267333 (Version 3)
Quarter: 2014Q3

REPORT INFORMATION
  Report Type: Report from Study
  Country: AU (occurrence: AU)
  Receive Date: 20140630
  Receipt Date: 20140709
  Transmission Date: 20150326
  Serious: Yes (Other)
  Sender: FDA-Public Use
  Company Number: PHHY2014AU060223

PATIENT
  Age: 69 Year
  Sex: Male

DRUGS (1)
  1. ACLASTA [Suspect]
     Active Substance: ZOLEDRONIC ACID
     Dosage: 1 TO 2 MLS
     Route: 042
     Dates: start: 20140514

REACTIONS (5)
  - Incorrect dose administered [Unknown]
  - Tremor [Unknown]
  - Parkinson^s disease [Unknown]
  - Device occlusion [Unknown]
  - Drug intolerance [Unknown]

NARRATIVE: CASE EVENT DATE: 20140514
